FAERS Safety Report 6900891-6 (Version None)
Quarter: 2010Q3

REPORT INFORMATION
  Report Type: 
  Country: None (occurrence: None)
  Receive Date: 20100803
  Receipt Date: 20100722
  Transmission Date: 20110219
  Serious: Yes (Hospitalization)
  Sender: FDA-Public Use
  Company Number: A0867452A

PATIENT
  Age: 75 Year
  Sex: Female
  Weight: 78.6 kg

DRUGS (2)
  1. AVANDIA [Suspect]
     Dosage: 4MG PER DAY
     Route: 048
     Dates: start: 20060101, end: 20060401
  2. AVANDIA [Suspect]
     Dosage: 8MG PER DAY
     Route: 048
     Dates: start: 20060401, end: 20070501

REACTIONS (6)
  - BONE DISORDER [None]
  - BONE INFARCTION [None]
  - ENCHONDROMA [None]
  - FRACTURED SACRUM [None]
  - MUSCLE STRAIN [None]
  - PUBIS FRACTURE [None]
